FAERS Safety Report 7240888-2 (Version None)
Quarter: 2011Q1

REPORT INFORMATION
  Report Type: 
  Country: None (occurrence: None)
  Receive Date: 20110124
  Receipt Date: 20110110
  Transmission Date: 20110831
  Serious: Yes (Other)
  Sender: FDA-Public Use
  Company Number: PHHY2011FR02816

PATIENT
  Sex: Male

DRUGS (5)
  1. CRESTOR [Concomitant]
     Indication: HYPERCHOLESTEROLAEMIA
  2. TEMERIT [Concomitant]
  3. EUPRESSYL [Concomitant]
  4. RASILEZ HCT [Suspect]
     Indication: HYPERTENSION
     Dosage: 1 DF QD, (300/12.5 MG) ONCE DAILY
     Route: 048
     Dates: start: 20101129, end: 20101201
  5. DIAMICRON [Concomitant]
     Indication: DIABETES MELLITUS

REACTIONS (3)
  - PULMONARY CONGESTION [None]
  - CHEST PAIN [None]
  - DRY MOUTH [None]
